FAERS Safety Report 10094294 (Version 2)
Quarter: 2014Q2

REPORT INFORMATION
  Report Type: Spontaneous
  Country: FR (occurrence: FR)
  Receive Date: 20140422
  Receipt Date: 20140624
  Transmission Date: 20141212
  Serious: Yes (Hospitalization, Other)
  Sender: FDA-Public Use
  Company Number: FR-ROCHE-1387437

PATIENT
  Age: 58 Year
  Sex: Female

DRUGS (4)
  1. XOLAIR [Suspect]
     Indication: ASTHMA
     Route: 058
     Dates: start: 201204, end: 201404
  2. XOLAIR [Suspect]
     Route: 058
  3. SERETIDE [Concomitant]
     Route: 065
     Dates: start: 201311
  4. SINGULAIR [Concomitant]

REACTIONS (4)
  - Cerebrovascular accident [Unknown]
  - Ischaemic stroke [Recovering/Resolving]
  - Forced expiratory volume decreased [Unknown]
  - Asthma [Unknown]
